FAERS Safety Report 10396737 (Version 1)
Quarter: 2014Q3

REPORT INFORMATION
  Report Type: Spontaneous
  Country: US (occurrence: US)
  Receive Date: 20140820
  Receipt Date: 20140820
  Transmission Date: 20150326
  Serious: Yes (Hospitalization)
  Sender: FDA-Public Use
  Company Number: US-GLAXOSMITHKLINE-B1025026A

PATIENT
  Age: 80 Year
  Sex: Female

DRUGS (2)
  1. ROPINIROLE. [Suspect]
     Active Substance: ROPINIROLE
     Indication: PRODUCT USED FOR UNKNOWN INDICATION
     Dosage: .5MG PER DAY
     Route: 065
  2. KAVA [Suspect]
     Active Substance: PIPER METHYSTICUM ROOT
     Indication: SLEEP DISORDER
     Route: 048

REACTIONS (5)
  - Acute psychosis [Recovering/Resolving]
  - Self-medication [Unknown]
  - Hallucination, visual [Unknown]
  - Drug interaction [Unknown]
  - Delusion [Unknown]
